FAERS Safety Report 9914823 (Version 9)
Quarter: 2014Q2

REPORT INFORMATION
  Report Type: Report from Study
  Country: DE (occurrence: DE)
  Receive Date: 20140220
  Receipt Date: 20140617
  Transmission Date: 20141212
  Serious: Yes (Hospitalization)
  Sender: FDA-Public Use
  Company Number: DE-JNJFOC-20140204044

PATIENT
  Age: 16 Year
  Sex: Female
  Weight: 47.8 kg

DRUGS (6)
  1. REMICADE [Suspect]
     Indication: CROHN^S DISEASE
     Route: 042
     Dates: start: 20090317, end: 20100220
  2. CIMZIA [Suspect]
     Indication: CROHN^S DISEASE
     Route: 065
     Dates: start: 20120727, end: 20131212
  3. PREDNISONE [Suspect]
     Indication: PRODUCT USED FOR UNKNOWN INDICATION
     Route: 065
  4. 5-AMINOSALICYLIC ACID [Concomitant]
     Route: 048
  5. AZATHIOPRINE [Concomitant]
     Route: 065
  6. AZATHIOPRINE [Concomitant]
     Route: 065

REACTIONS (4)
  - Genital abscess [Recovered/Resolved with Sequelae]
  - Fistula [Recovered/Resolved with Sequelae]
  - Rectal stenosis [Recovered/Resolved with Sequelae]
  - Crohn^s disease [Not Recovered/Not Resolved]
